FAERS Safety Report 23357716 (Version 1)
Quarter: 2024Q1

REPORT INFORMATION
  Report Type: Spontaneous
  Country: FR (occurrence: FR)
  Receive Date: 20240102
  Receipt Date: 20240102
  Transmission Date: 20240410
  Serious: Yes (Other)
  Sender: FDA-Public Use
  Company Number: FR-009507513-2312FRA004397

PATIENT
  Age: 44 Year
  Sex: Female
  Weight: 78 kg

DRUGS (2)
  1. PACLITAXEL [Suspect]
     Active Substance: PACLITAXEL
     Indication: Triple negative breast cancer
     Dosage: 80 MILLIGRAM/SQ. METER
     Route: 065
     Dates: start: 20221130
  2. PEMBROLIZUMAB [Suspect]
     Active Substance: PEMBROLIZUMAB
     Indication: Triple negative breast cancer
     Dosage: UNK
     Route: 065
     Dates: start: 20221207

REACTIONS (8)
  - Malignant neoplasm progression [Unknown]
  - Constipation [Unknown]
  - Pain [Unknown]
  - Depression [Unknown]
  - Weight decreased [Unknown]
  - Anxiety [Unknown]
  - Headache [Unknown]
  - Tooth infection [Unknown]

NARRATIVE: CASE EVENT DATE: 20230101
